FAERS Safety Report 6736799-9 (Version None)
Quarter: 2010Q2

REPORT INFORMATION
  Report Type: 
  Country: None (occurrence: None)
  Receive Date: 20100521
  Receipt Date: 20100518
  Transmission Date: 20101027
  Serious: Yes (Death, Other)
  Sender: FDA-Public Use
  Company Number: US-WYE-H15233210

PATIENT
  Sex: Male
  Weight: 99.88 kg

DRUGS (2)
  1. PRISTIQ [Suspect]
     Indication: BIPOLAR DISORDER
     Dosage: 50 MG, UNKNOWN FREQUENCY
     Dates: start: 20100201, end: 20100101
  2. TRAZODONE HCL [Concomitant]
     Dosage: UNKNOWN

REACTIONS (7)
  - ANGER [None]
  - ASPHYXIA [None]
  - COMPLETED SUICIDE [None]
  - DEPRESSED MOOD [None]
  - DRUG INEFFECTIVE [None]
  - FEELING ABNORMAL [None]
  - MALAISE [None]
